FAERS Safety Report 10328690 (Version 4)
Quarter: 2014Q3

REPORT INFORMATION
  Report Type: Spontaneous
  Country: FR (occurrence: FR)
  Receive Date: 20140721
  Receipt Date: 20140918
  Transmission Date: 20150326
  Serious: Yes (Hospitalization)
  Sender: FDA-Public Use
  Company Number: FR-PFIZER INC-2014197710

PATIENT
  Age: 77 Year
  Sex: Male

DRUGS (2)
  1. CAMPTO [Suspect]
     Active Substance: IRINOTECAN
     Dosage: 260 MG, CYCLIC
     Dates: start: 201402, end: 20140521
  2. ERBITUX [Suspect]
     Active Substance: CETUXIMAB
     Dosage: 715 MG, CYCLIC
     Dates: start: 201402, end: 20140521

REACTIONS (3)
  - Skin toxicity [Unknown]
  - Conjunctivitis [Unknown]
  - Corneal abscess [Unknown]

NARRATIVE: CASE EVENT DATE: 20140521
